FAERS Safety Report 23839051 (Version 1)
Quarter: 2024Q2

REPORT INFORMATION
  Report Type: Spontaneous
  Country: FR (occurrence: FR)
  Receive Date: 20240509
  Receipt Date: 20240509
  Transmission Date: 20240716
  Serious: Yes (Other)
  Sender: FDA-Public Use
  Company Number: None

PATIENT
  Age: 71 Year
  Sex: Female

DRUGS (4)
  1. ZOLEDRONIC ACID [Suspect]
     Active Substance: ZOLEDRONIC ACID
     Indication: Metastatic bone disease prophylaxis
     Dosage: TIME INTERVAL: CYCLICAL: 4 MG/CYCLIC,  ANHYDROUS ZOLEDRONIC ACID
     Route: 042
     Dates: start: 20240123, end: 20240123
  2. PACLITAXEL [Suspect]
     Active Substance: PACLITAXEL
     Indication: Breast cancer
     Dosage: TIME INTERVAL: CYCLICAL: 169 MG/CYCLIC
     Route: 042
     Dates: start: 20240123, end: 20240123
  3. FAMOTIDINE [Suspect]
     Active Substance: FAMOTIDINE
     Indication: Chemotherapy cytokine prophylaxis
     Dosage: TIME INTERVAL: CYCLICAL: 20 MG/CYCLIC
     Route: 042
     Dates: start: 20240123, end: 20240123
  4. METHYLPREDNISOLONE [Suspect]
     Active Substance: METHYLPREDNISOLONE
     Indication: Chemotherapy cytokine prophylaxis
     Dosage: TIME INTERVAL: CYCLICAL: 40 MG/CYCLIC
     Route: 042
     Dates: start: 20240123, end: 20240123

REACTIONS (1)
  - Type I hypersensitivity [Recovered/Resolved]

NARRATIVE: CASE EVENT DATE: 20240123
